FAERS Safety Report 5738784-2 (Version None)
Quarter: 2008Q2

REPORT INFORMATION
  Report Type: 
  Country: None (occurrence: None)
  Receive Date: 20080515
  Receipt Date: 20080228
  Transmission Date: 20081010
  Serious: No
  Sender: FDA-Public Use
  Company Number: A0712440A

PATIENT
  Age: 32 Year
  Sex: Female

DRUGS (5)
  1. VERAMYST [Suspect]
     Indication: PNEUMONIA
     Dosage: 1SPR PER DAY
     Route: 045
     Dates: start: 20080208, end: 20080220
  2. ZITHROMAX [Concomitant]
  3. COUGH MEDICATION [Concomitant]
  4. DECONGESTANT [Concomitant]
  5. BLOOD PRESSURE MEDICATION [Concomitant]

REACTIONS (5)
  - EPISTAXIS [None]
  - NASAL INFLAMMATION [None]
  - NASAL OEDEMA [None]
  - NASAL ULCER [None]
  - PAIN [None]
